FAERS Safety Report 18572823 (Version 3)
Quarter: 2021Q1

REPORT INFORMATION
  Report Type: Report from Study
  Country: CA (occurrence: CA)
  Receive Date: 20201203
  Receipt Date: 20210331
  Transmission Date: 20210419
  Serious: Yes (Other)
  Sender: FDA-Public Use
  Company Number: CA-JNJFOC-20201151587

PATIENT
  Sex: Male

DRUGS (1)
  1. REMICADE [Suspect]
     Active Substance: INFLIXIMAB
     Indication: CROHN^S DISEASE
     Dosage: ON 25?MAR?2021, THE PATIENT RECEIVED 71ST INFUSION OF 400 MG OF REMICADE INFUSION
     Route: 042
     Dates: start: 20130220

REACTIONS (1)
  - Skin cancer [Recovered/Resolved]
